FAERS Safety Report 23596469 (Version 2)
Quarter: 2024Q1

REPORT INFORMATION
  Report Type: Spontaneous
  Country: US (occurrence: US)
  Receive Date: 20240305
  Receipt Date: 20240308
  Transmission Date: 20240409
  Serious: No
  Sender: FDA-Public Use
  Company Number: US-SANOFI-01961557

PATIENT
  Age: 78 Year
  Sex: Female

DRUGS (1)
  1. LANTUS SOLOSTAR [Suspect]
     Active Substance: INSULIN GLARGINE
     Indication: Type 2 diabetes mellitus
     Dosage: 6 IU, QD
     Dates: start: 202306

REACTIONS (3)
  - Eye oedema [Unknown]
  - Malaise [Unknown]
  - Blood glucose increased [Unknown]
